FAERS Safety Report 11762495 (Version 3)
Quarter: 2016Q4

REPORT INFORMATION
  Report Type: Spontaneous
  Country: DK (occurrence: DK)
  Receive Date: 20151120
  Receipt Date: 20161128
  Transmission Date: 20170206
  Serious: Yes (Death, Life-Threatening)
  Sender: FDA-Public Use
  Company Number: DK-ASTRAZENECA-2015SF12498

PATIENT
  Age: 21869 Day
  Sex: Female

DRUGS (11)
  1. CLINDAMYCIN. [Concomitant]
     Active Substance: CLINDAMYCIN
     Indication: BACTERIAL SEPSIS
     Dosage: 600 THREE TIMES A DAY
     Dates: start: 20151104, end: 20151116
  2. ENTOCORD [Concomitant]
     Indication: PRODUCT USED FOR UNKNOWN INDICATION
  3. NOXAFIL [Concomitant]
     Active Substance: POSACONAZOLE
     Indication: PRODUCT USED FOR UNKNOWN INDICATION
     Dosage: 299 DAILY
  4. PANTOPRAZOL [Concomitant]
     Active Substance: PANTOPRAZOLE SODIUM
     Indication: PRODUCT USED FOR UNKNOWN INDICATION
     Dosage: 40, DAILY
  5. ADPORT [Concomitant]
     Active Substance: TACROLIMUS
     Indication: PRODUCT USED FOR UNKNOWN INDICATION
     Dosage: 0.5, DAILY
  6. UNIKALK FORTE [Concomitant]
     Indication: SUPPLEMENTATION THERAPY
  7. PREDNISOLON [Concomitant]
     Active Substance: PREDNISOLONE
     Indication: PRODUCT USED FOR UNKNOWN INDICATION
     Dosage: 30, DALIY
  8. ZELITREX [Concomitant]
     Active Substance: VALACYCLOVIR HYDROCHLORIDE
     Indication: PRODUCT USED FOR UNKNOWN INDICATION
     Dosage: 500 DAILY
  9. MABLET [Concomitant]
     Indication: MINERAL SUPPLEMENTATION
     Dosage: 350 TWO TIMES DAILY
  10. MERONEM [Suspect]
     Active Substance: MEROPENEM
     Indication: BACTERIAL SEPSIS
     Route: 042
     Dates: start: 20151104, end: 20151108
  11. DAPSON [Concomitant]
     Active Substance: DAPSONE
     Indication: PRODUCT USED FOR UNKNOWN INDICATION
     Dosage: 100 DAILY

REACTIONS (8)
  - Gastrooesophageal reflux disease [Recovered/Resolved]
  - Infection [Fatal]
  - Respiratory failure [Recovered/Resolved]
  - Dysgeusia [Recovered/Resolved]
  - Cardiac arrest [Recovered/Resolved]
  - Aspiration [Recovered/Resolved]
  - Dyspnoea [Recovered/Resolved]
  - Bone marrow disorder [Fatal]

NARRATIVE: CASE EVENT DATE: 20151108
